FAERS Safety Report 16844835 (Version 4)
Quarter: 2019Q4

REPORT INFORMATION
  Report Type: Spontaneous
  Country: JP (occurrence: JP)
  Receive Date: 20190924
  Receipt Date: 20191029
  Transmission Date: 20200122
  Serious: Yes (Death, Hospitalization, Other)
  Sender: FDA-Public Use
  Company Number: JP-PFIZER INC-2019395814

PATIENT
  Age: 66 Year
  Sex: Male

DRUGS (2)
  1. GEMCITABINE HYDROCHLORIDE. [Suspect]
     Active Substance: GEMCITABINE HYDROCHLORIDE
     Indication: ADENOSQUAMOUS CELL LUNG CANCER
     Dosage: 1000 MG/M2, CYCLIC (DAY 1 AND DAY 8) AS FIRST LINE CHEMOTHERAPY
  2. CISPLATIN. [Suspect]
     Active Substance: CISPLATIN
     Indication: ADENOSQUAMOUS CELL LUNG CANCER
     Dosage: 80 MG/M2, CYCLIC (DAY1) AS THE FIRST LINE CHEMOTHERAPY

REACTIONS (1)
  - Thrombotic thrombocytopenic purpura [Fatal]
